FAERS Safety Report 14839348 (Version 1)
Quarter: 2018Q2

REPORT INFORMATION
  Report Type: Report from Study
  Country: IT (occurrence: IT)
  Receive Date: 20180502
  Receipt Date: 20180502
  Transmission Date: 20180711
  Serious: Yes (Other)
  Sender: FDA-Public Use
  Company Number: IT-GILEAD-2018-0335331

PATIENT

DRUGS (2)
  1. ONCO-CARBIDE [Concomitant]
     Active Substance: HYDROXYUREA
  2. LEDIPASVIR/SOFOSBUVIR [Suspect]
     Active Substance: LEDIPASVIR\SOFOSBUVIR
     Indication: HEPATITIS C
     Dosage: 1 DF, QD
     Route: 065
     Dates: start: 201606

REACTIONS (3)
  - Chronic myeloid leukaemia [Unknown]
  - Platelet count increased [Unknown]
  - Blood count abnormal [Unknown]
